FAERS Safety Report 23546317 (Version 3)
Quarter: 2024Q2

REPORT INFORMATION
  Report Type: Report from Study
  Country: CO (occurrence: CO)
  Receive Date: 20240220
  Receipt Date: 20240619
  Transmission Date: 20240716
  Serious: Yes (Hospitalization)
  Sender: FDA-Public Use
  Company Number: CO-BIOGEN-2023BI01191338

PATIENT
  Sex: Female
  Weight: 67 kg

DRUGS (6)
  1. TYSABRI [Suspect]
     Active Substance: NATALIZUMAB
     Indication: Multiple sclerosis
     Route: 050
     Dates: start: 20180123, end: 20240202
  2. TYSABRI [Suspect]
     Active Substance: NATALIZUMAB
     Route: 050
     Dates: start: 20240604
  3. NOVIDOL [Concomitant]
     Indication: Product used for unknown indication
     Route: 050
     Dates: start: 2023
  4. MONIDEM [Concomitant]
     Indication: Product used for unknown indication
     Route: 050
     Dates: start: 2023
  5. ALLIVIAX [Concomitant]
     Indication: Product used for unknown indication
     Route: 050
  6. ESCITALOPRAM [Concomitant]
     Active Substance: ESCITALOPRAM OXALATE
     Indication: Product used for unknown indication
     Route: 050

REACTIONS (2)
  - Multiple sclerosis relapse [Recovered/Resolved]
  - Weight increased [Not Recovered/Not Resolved]

NARRATIVE: CASE EVENT DATE: 20220101
